FAERS Safety Report 4439831-0 (Version None)
Quarter: 2004Q3

REPORT INFORMATION
  Report Type: 
  Country: None (occurrence: None)
  Receive Date: 20040831
  Receipt Date: 20040816
  Transmission Date: 20050211
  Serious: No
  Sender: FDA-Public Use
  Company Number: 04H-163-0271481-00

PATIENT
  Sex: 0

DRUGS (3)
  1. AMINOSYN 10% [Suspect]
     Indication: PARENTERAL NUTRITION
     Dosage: 2 ML/KG/HR (10%), OVER 96
  2. AMINOSYN 10% [Suspect]
     Dosage: 2 ML/KG/HR (10%), OVER 96 HRS. EVERY 3 WKS, INTRAVENOUS
     Route: 042
  3. ACIVICIN [Suspect]
     Dosage: 50 MG/M2/DAY, OVER 72 HRS. EVERY 3 WKS, INTRAVENOUS
     Route: 042

REACTIONS (2)
  - DRUG TOXICITY [None]
  - NEUTROPENIA [None]
